FAERS Safety Report 16498163 (Version 5)
Quarter: 2020Q1

REPORT INFORMATION
  Report Type: Report from Study
  Country: CL (occurrence: CL)
  Receive Date: 20190628
  Receipt Date: 20200225
  Transmission Date: 20200409
  Serious: Yes (Death, Hospitalization, Other)
  Sender: FDA-Public Use
  Company Number: PHHY2019CL146793

PATIENT
  Age: 45 Year
  Sex: Female

DRUGS (3)
  1. DAUNORUBICIN [Concomitant]
     Active Substance: DAUNORUBICIN
     Indication: ACUTE MYELOID LEUKAEMIA
     Dosage: UNK
     Route: 065
  2. MIDOSTAURIN [Suspect]
     Active Substance: MIDOSTAURIN
     Indication: ACUTE MYELOID LEUKAEMIA
     Dosage: 50 MG, BID
     Route: 065
     Dates: start: 20190607, end: 20190609
  3. CYTARABINE. [Concomitant]
     Active Substance: CYTARABINE
     Indication: ACUTE MYELOID LEUKAEMIA
     Dosage: UNK
     Route: 065

REACTIONS (10)
  - Bacterial test positive [Unknown]
  - Confusional state [Unknown]
  - Acute myeloid leukaemia recurrent [Fatal]
  - Headache [Fatal]
  - Altered state of consciousness [Fatal]
  - Hyperviscosity syndrome [Fatal]
  - Hyperleukocytosis [Unknown]
  - Bone marrow failure [Unknown]
  - Seizure [Fatal]
  - Febrile neutropenia [Unknown]
